FAERS Safety Report 25870740 (Version 1)
Quarter: 2025Q4

REPORT INFORMATION
  Report Type: Spontaneous
  Country: US (occurrence: None)
  Receive Date: 20251001
  Receipt Date: 20251001
  Transmission Date: 20260118
  Serious: Yes (Disabling)
  Sender: FDA-CTU
  Company Number: None

PATIENT
  Age: 67 Year
  Sex: Female
  Weight: 39.15 kg

DRUGS (3)
  1. LEVOFLOXACIN [Suspect]
     Active Substance: LEVOFLOXACIN
     Indication: Urinary tract infection
     Dosage: OTHER QUANTITY : 10 TABLET(S);?FREQUENCY : DAILY;?
     Route: 048
     Dates: start: 20150923, end: 20150928
  2. METOPROLOL [Concomitant]
     Active Substance: METOPROLOL
  3. Multi vitamins/mineral [Concomitant]

REACTIONS (15)
  - Hypotonia [None]
  - Neuropathy peripheral [None]
  - Myalgia [None]
  - Autonomic nervous system imbalance [None]
  - Tinnitus [None]
  - Vertigo [None]
  - Mental disorder [None]
  - Anxiety [None]
  - Osteopenia [None]
  - Osteoporosis [None]
  - Hyperthyroidism [None]
  - Disability [None]
  - Toxicity to various agents [None]
  - Muscle atrophy [None]
  - Weight decreased [None]

NARRATIVE: CASE EVENT DATE: 20150928
